FAERS Safety Report 5566698-X (Version None)
Quarter: 2007Q4

REPORT INFORMATION
  Report Type: 
  Country: None (occurrence: None)
  Receive Date: 20071219
  Receipt Date: 20071211
  Transmission Date: 20080405
  Serious: Yes (Hospitalization)
  Sender: FDA-Public Use
  Company Number: JP-MERCK-0710USA01309

PATIENT
  Age: 52 Year
  Sex: Male

DRUGS (18)
  1. PEPCID RPD [Suspect]
     Indication: GASTRITIS
     Route: 048
     Dates: end: 20060727
  2. PROCYLIN [Suspect]
     Indication: ARTERIOSCLEROSIS OBLITERANS
     Route: 048
     Dates: end: 20060727
  3. SIGMART [Suspect]
     Indication: ANGINA PECTORIS
     Route: 048
     Dates: end: 20060824
  4. SELOKEN [Suspect]
     Indication: HYPERTENSION
     Route: 048
     Dates: end: 20060807
  5. PREDNISOLONE [Suspect]
     Indication: DRUG HYPERSENSITIVITY
     Route: 048
     Dates: start: 20060810, end: 20060822
  6. [THERAPY UNSPECIFIED] [Suspect]
     Indication: NASOPHARYNGITIS
     Route: 048
     Dates: start: 20060808, end: 20060809
  7. HALCION [Concomitant]
     Indication: INSOMNIA
     Route: 048
  8. LENDORMIN [Concomitant]
     Indication: INSOMNIA
     Route: 048
  9. MICARDIS [Concomitant]
     Indication: HYPERTENSION
     Route: 048
  10. OLMETEC [Concomitant]
     Indication: HYPERTENSION
     Route: 048
  11. FOLIAMIN [Concomitant]
     Indication: HYPOVITAMINOSIS
     Route: 048
  12. NEUROVITAN [Concomitant]
     Indication: HYPOVITAMINOSIS
     Route: 048
  13. CYANOCOBALAMIN [Concomitant]
     Indication: HYPOVITAMINOSIS
     Route: 048
  14. TANKARU [Concomitant]
     Indication: HYPERPHOSPHATAEMIA
     Route: 048
  15. RENAGEL [Concomitant]
     Indication: HYPERPHOSPHATAEMIA
     Route: 048
  16. ASPIRIN [Concomitant]
     Indication: ANGINA PECTORIS
     Route: 048
  17. ADALAT [Concomitant]
     Indication: HYPERTENSION
     Route: 048
  18. SELBEX [Concomitant]
     Indication: GASTRITIS
     Route: 048

REACTIONS (3)
  - EOSINOPHILIA [None]
  - EOSINOPHILIC PNEUMONIA [None]
  - THROMBOCYTOPENIC PURPURA [None]
